FAERS Safety Report 5281623-7 (Version None)
Quarter: 2007Q1

REPORT INFORMATION
  Report Type: 
  Country: None (occurrence: None)
  Receive Date: 20070330
  Receipt Date: 20070323
  Transmission Date: 20070707
  Serious: Yes (Other)
  Sender: FDA-Public Use
  Company Number: 2007AC00517

PATIENT
  Age: 26957 Day
  Sex: Male
  Weight: 78 kg

DRUGS (5)
  1. CRESTOR [Suspect]
     Indication: HYPERCHOLESTEROLAEMIA
     Route: 048
     Dates: start: 20070220
  2. GLIMEPIRIDE SANDOZ [Concomitant]
  3. ASCAL BRISPER [Concomitant]
  4. SYMBICORT [Concomitant]
     Dosage: 200/6MCG/DO 120DO
     Route: 055
  5. VITAMIN B-12 [Concomitant]

REACTIONS (1)
  - SOMNOLENCE [None]
